FAERS Safety Report 13894954 (Version 1)
Quarter: 2017Q3

REPORT INFORMATION
  Report Type: Spontaneous
  Country: US (occurrence: US)
  Receive Date: 20170817
  Receipt Date: 20170817
  Transmission Date: 20171127
  Serious: Yes (Disabling)
  Sender: FDA-Public Use
  Company Number: None

PATIENT
  Sex: Female
  Weight: 67.5 kg

DRUGS (6)
  1. NITROFURANTN 100 MG CAP NORT [Suspect]
     Active Substance: NITROFURANTOIN
     Indication: URINARY TRACT INFECTION
     Dosage: ?          QUANTITY:14 CAPSULE(S);?
     Route: 048
     Dates: start: 20160831, end: 20160902
  2. VITAMIN D3 [Concomitant]
     Active Substance: CHOLECALCIFEROL
  3. AMITRIPTYLINE [Concomitant]
     Active Substance: AMITRIPTYLINE
  4. ESTER C [Concomitant]
  5. FISH OIL [Concomitant]
     Active Substance: FISH OIL
  6. MULTI VITAMIN [Concomitant]
     Active Substance: VITAMINS

REACTIONS (18)
  - Polyneuropathy [None]
  - Dyskinesia [None]
  - Nervousness [None]
  - Muscular weakness [None]
  - Malaise [None]
  - Fibromyalgia [None]
  - Hypoaesthesia [None]
  - Musculoskeletal disorder [None]
  - Neuropathy peripheral [None]
  - Confusional state [None]
  - Speech disorder [None]
  - Lethargy [None]
  - Paraesthesia [None]
  - Dysphagia [None]
  - Hot flush [None]
  - Nausea [None]
  - Disturbance in attention [None]
  - Burning sensation [None]

NARRATIVE: CASE EVENT DATE: 20160831
